FAERS Safety Report 9681231 (Version 3)
Quarter: 2014Q1

REPORT INFORMATION
  Report Type: Report from Study
  Country: JP (occurrence: JP)
  Receive Date: 20131111
  Receipt Date: 20140131
  Transmission Date: 20141002
  Serious: Yes (Death)
  Sender: FDA-Public Use
  Company Number: JP-SA-THYM-1003941

PATIENT
  Age: 62 Year
  Sex: Male
  Weight: 68 kg

DRUGS (10)
  1. THYMOGLOBULINE [Suspect]
     Indication: KIDNEY TRANSPLANT REJECTION
     Dosage: 125 MG, QD
     Route: 065
     Dates: start: 20120124, end: 20120205
  2. TACROLIMUS [Concomitant]
     Indication: IMMUNOSUPPRESSION
     Dosage: 3 MG- 5 MG/DAY
     Route: 048
     Dates: start: 20120115, end: 20120301
  3. MEDROL [Concomitant]
     Indication: IMMUNOSUPPRESSION
     Dosage: 4 MG, QD
     Route: 048
     Dates: start: 20120115, end: 20120301
  4. WARFARIN [Concomitant]
     Dosage: 1 MG, QD
     Route: 048
     Dates: start: 20120117, end: 20120229
  5. ARTIST [Concomitant]
     Dosage: 1.25 MG, QD
     Route: 048
     Dates: start: 20120117, end: 20120229
  6. PARIET [Concomitant]
     Indication: PROPHYLAXIS
     Dosage: 20 MG, QD
     Route: 048
     Dates: start: 20120114, end: 20120229
  7. HALFDIGOXIN-KY [Concomitant]
     Dosage: 0.125 MG, QD ; REGULARLY TAKEN DRUG
     Route: 048
     Dates: start: 20120130, end: 20120229
  8. SOLU-MEDROL [Concomitant]
     Indication: PROPHYLAXIS
     Route: 042
     Dates: start: 20120119, end: 20120120
  9. SOLU-MEDROL [Concomitant]
     Indication: PROPHYLAXIS
     Route: 042
     Dates: start: 20120121, end: 20120122
  10. SOLU-MEDROL [Concomitant]
     Indication: PROPHYLAXIS
     Route: 042
     Dates: start: 20120123, end: 20120124

REACTIONS (1)
  - Acute respiratory distress syndrome [Fatal]
